FAERS Safety Report 8851465 (Version 3)
Quarter: 2012Q4

REPORT INFORMATION
  Report Type: 
  Country: US (occurrence: US)
  Receive Date: 20121022
  Receipt Date: 20121122
  Transmission Date: 20130627
  Serious: No
  Sender: FDA-Public Use
  Company Number: US-009507513-1210USA002368

PATIENT
  Age: 56 Year
  Sex: Female

DRUGS (1)
  1. SAPHRIS [Suspect]
     Indication: BIPOLAR DISORDER
     Dosage: 5 mg, UNK
     Route: 058
     Dates: start: 20120927, end: 20120928

REACTIONS (1)
  - Speech disorder [Recovered/Resolved]
